FAERS Safety Report 6638257-9 (Version None)
Quarter: 2010Q1

REPORT INFORMATION
  Report Type: 
  Country: None (occurrence: None)
  Receive Date: 20100312
  Receipt Date: 20100308
  Transmission Date: 20100710
  Serious: Yes (Hospitalization)
  Sender: FDA-Public Use
  Company Number: SPV1-2010-00230

PATIENT
  Age: 80 Year
  Sex: Male

DRUGS (3)
  1. FOSRENOL [Suspect]
     Indication: HYPERPHOSPHATAEMIA
     Dosage: 2250 MG, ORAL
     Route: 048
     Dates: start: 20090901, end: 20100206
  2. WARFARIN SODIUM [Suspect]
     Indication: ATRIAL FIBRILLATION
     Dosage: ORAL
     Route: 048
  3. PHOSBLOCK (SEVELAMER HYDROCHLORIDE) [Concomitant]

REACTIONS (10)
  - ABDOMINAL DISTENSION [None]
  - BLOOD PRESSURE DECREASED [None]
  - CONSTIPATION [None]
  - DRUG ADMINISTRATION ERROR [None]
  - FALL [None]
  - MASTICATION DISORDER [None]
  - MELAENA [None]
  - PELVIC FRACTURE [None]
  - WRONG TECHNIQUE IN DRUG USAGE PROCESS [None]
  - X-RAY GASTROINTESTINAL TRACT ABNORMAL [None]
